FAERS Safety Report 7102544-0 (Version None)
Quarter: 2010Q4

REPORT INFORMATION
  Report Type: 
  Country: None (occurrence: None)
  Receive Date: 20101115
  Receipt Date: 20101104
  Transmission Date: 20110411
  Serious: Yes (Death, Other)
  Sender: FDA-Public Use
  Company Number: JP-ROCHE-740307

PATIENT
  Age: 35 Year
  Sex: Male

DRUGS (2)
  1. AVASTIN [Suspect]
     Indication: LUNG ADENOCARCINOMA RECURRENT
     Dosage: DOSAGE UNCERATIN; THERAPY START: MIDDLE OF DECEMBER 2009
     Route: 041
     Dates: start: 20091215
  2. ALIMTA [Concomitant]
     Dosage: DOSAGE: UNCERATIN
     Route: 041

REACTIONS (2)
  - DISEASE PROGRESSION [None]
  - EPISTAXIS [None]
